FAERS Safety Report 20966944 (Version 1)
Quarter: 2022Q2

REPORT INFORMATION
  Report Type: Spontaneous
  Country: US (occurrence: None)
  Receive Date: 20220615
  Receipt Date: 20220615
  Transmission Date: 20220721
  Serious: Yes (Disabling, Other)
  Sender: FDA-Public Use
  Company Number: None

PATIENT
  Age: 38 Year
  Sex: Female
  Weight: 51.75 kg

DRUGS (9)
  1. ARMODAFINIL [Suspect]
     Active Substance: ARMODAFINIL
     Indication: Hypersomnia
     Dosage: OTHER QUANTITY : 1 TABLET(S);?FREQUENCY : DAILY;?
     Route: 048
     Dates: start: 20220522, end: 20220615
  2. Ativan 0.5mg daily - PM [Concomitant]
  3. Armodafinil 150mg - AM [Concomitant]
  4. Xyzal - PM [Concomitant]
  5. Acetyl-L-Carnitine - twice daily [Concomitant]
  6. Biotin - AM [Concomitant]
  7. Shellbroken reishi spore - 2 capsules, twice daily [Concomitant]
  8. Vitamin D - AM [Concomitant]
  9. Methylcobalamin B12 - PM [Concomitant]

REACTIONS (17)
  - Product substitution issue [None]
  - Asthenia [None]
  - Arthralgia [None]
  - Myalgia [None]
  - Bone pain [None]
  - Exercise tolerance decreased [None]
  - Inadequate analgesia [None]
  - Pyrexia [None]
  - Peripheral swelling [None]
  - Tendon disorder [None]
  - Tendon pain [None]
  - Drug ineffective [None]
  - Fatigue [None]
  - Thinking abnormal [None]
  - Memory impairment [None]
  - Cognitive disorder [None]
  - Pain in extremity [None]

NARRATIVE: CASE EVENT DATE: 20220522
